FAERS Safety Report 9914240 (Version 1)
Quarter: 2014Q1

REPORT INFORMATION
  Report Type: Spontaneous
  Country: US (occurrence: None)
  Receive Date: 20140219
  Receipt Date: 20140219
  Transmission Date: 20141002
  Serious: No
  Sender: FDA-Public Use
  Company Number: None

PATIENT
  Age: 46 Year
  Sex: Male
  Weight: 95.26 kg

DRUGS (1)
  1. GENERIC CONCERTA [Suspect]
     Indication: ATTENTION DEFICIT/HYPERACTIVITY DISORDER
     Dosage: 1    ONCE DAILY  TAKEN BY MOUTH?EVERY 30 DAYS
     Route: 048

REACTIONS (2)
  - Drug ineffective [None]
  - Product substitution issue [None]
